FAERS Safety Report 4367691-5 (Version None)
Quarter: 2004Q2

REPORT INFORMATION
  Report Type: 
  Country: None (occurrence: None)
  Receive Date: 20040526
  Receipt Date: 20040317
  Transmission Date: 20050107
  Serious: No
  Sender: FDA-Public Use
  Company Number: 2004US002051

PATIENT
  Sex: Female

DRUGS (8)
  1. ALOXI [Suspect]
     Indication: PROPHYLAXIS OF NAUSEA AND VOMITING
     Dosage: 0.25 MG, SINGLE, INTRAVENOUS
     Route: 042
     Dates: start: 20040226, end: 20040226
  2. DEXAMETHASONE [Concomitant]
  3. CYTOXAN [Concomitant]
  4. ADRIAMYCIN PFS [Concomitant]
  5. NEULASTA [Concomitant]
  6. MULTIVITAMINS (PANTHENOL, ASCORBIC ACID, ERGOCALCIFEROL, FOLIC ACID, N [Concomitant]
  7. CALCIUM (CALCIUM) [Concomitant]
  8. VITAMIN D [Concomitant]

REACTIONS (1)
  - HEADACHE [None]
